FAERS Safety Report 5390852-3 (Version None)
Quarter: 2007Q3

REPORT INFORMATION
  Report Type: 
  Country: None (occurrence: None)
  Receive Date: 20070716
  Receipt Date: 20070702
  Transmission Date: 20080115
  Serious: Yes (Hospitalization)
  Sender: FDA-Public Use
  Company Number: 2007-02162

PATIENT
  Age: 50 Year
  Sex: Male
  Weight: 55 kg

DRUGS (10)
  1. VELCADE [Suspect]
     Indication: MULTIPLE MYELOMA
     Dosage: 2.00 MG, , INTRAVENOUS; 1.60 MG, , INTRAVENOUS
     Route: 042
     Dates: start: 20070501, end: 20070508
  2. VELCADE [Suspect]
     Indication: MULTIPLE MYELOMA
     Dosage: 2.00 MG, , INTRAVENOUS; 1.60 MG, , INTRAVENOUS
     Route: 042
     Dates: start: 20070522, end: 20070529
  3. PREDNISOLONE [Concomitant]
  4. NEORAL [Concomitant]
  5. DIFLUCAN [Concomitant]
  6. SULFAMETHOXAZOLE + TRIMETHOPRIM [Concomitant]
  7. AMLODIPINE BESYLATE [Concomitant]
  8. PERINDOPRIL ERBUMINE [Concomitant]
  9. VINILON (IMMUNOGLOBULIN HUMAN NORMAL) [Concomitant]
  10. PREDONINE-1 (PREDNISOLONE ACETATE) [Concomitant]

REACTIONS (8)
  - GRAFT VERSUS HOST DISEASE [None]
  - HYPOAESTHESIA [None]
  - HYPONATRAEMIA [None]
  - NEUTROPHIL COUNT DECREASED [None]
  - PLATELET COUNT DECREASED [None]
  - SKIN DISORDER [None]
  - STOMATITIS [None]
  - WHITE BLOOD CELL COUNT DECREASED [None]
